FAERS Safety Report 16544160 (Version 1)
Quarter: 2019Q3

REPORT INFORMATION
  Report Type: Spontaneous
  Country: US (occurrence: US)
  Receive Date: 20190528
  Receipt Date: 20190528
  Transmission Date: 20191004
  Serious: Yes (Other)
  Sender: FDA-Public Use
  Company Number: None

PATIENT
  Age: 61 Year
  Sex: Female
  Weight: 147.42 kg

DRUGS (18)
  1. BREOELLIPPA [Concomitant]
  2. SYNTHROID [Concomitant]
     Active Substance: LEVOTHYROXINE SODIUM
  3. HYDRALAZINE [Concomitant]
     Active Substance: HYDRALAZINE HYDROCHLORIDE
  4. METFORMIN [Concomitant]
     Active Substance: METFORMIN HYDROCHLORIDE
  5. SPINOLACTONE [Concomitant]
  6. LOSARTAN. [Concomitant]
     Active Substance: LOSARTAN
  7. OMEPRAZOLE. [Concomitant]
     Active Substance: OMEPRAZOLE
  8. ATORVASTATIN [Concomitant]
     Active Substance: ATORVASTATIN
  9. MAGNESIUM [Concomitant]
     Active Substance: MAGNESIUM
  10. LYMCA [Concomitant]
  11. INCWISEELLIPTA ?? [Concomitant]
  12. ROPINIROLE. [Suspect]
     Active Substance: ROPINIROLE
     Indication: TREMOR
     Dosage: ?          OTHER STRENGTH:.25MG;QUANTITY:90 TOT - TOTAL;?
     Route: 048
  13. CYMBALTA [Concomitant]
     Active Substance: DULOXETINE HYDROCHLORIDE
  14. POTASSIUM [Concomitant]
     Active Substance: POTASSIUM
  15. VITAMIN D3 [Concomitant]
     Active Substance: CHOLECALCIFEROL
  16. OXYGEN CONCENTRATOR C-PAP MACHINE [Concomitant]
  17. BAYER LOW DOSE [Concomitant]
     Active Substance: ASPIRIN
  18. VITAMIN B COMPLEX [Concomitant]
     Active Substance: CYANOCOBALAMIN\DEXPANTHENOL\NIACINAMIDE\PYRIDOXINE HYDROCHLORIDE\RIBOFLAVIN 5^-PHOSPHATE SODIUM\THIAMINE HYDROCHLORIDE\VITAMIN B COMPLEX

REACTIONS (7)
  - Insomnia [None]
  - Muscle spasms [None]
  - Anxiety [None]
  - Dyskinesia [None]
  - Nausea [None]
  - Depression [None]
  - Restlessness [None]

NARRATIVE: CASE EVENT DATE: 20180915
